FAERS Safety Report 8172627-5 (Version None)
Quarter: 2012Q1

REPORT INFORMATION
  Report Type: 
  Country: None (occurrence: None)
  Receive Date: 20120229
  Receipt Date: 20120223
  Transmission Date: 20120608
  Serious: No
  Sender: FDA-Public Use
  Company Number: US-PFIZER INC-2012049311

PATIENT
  Sex: Male
  Weight: 45.3 kg

DRUGS (2)
  1. MULTI-VITAMINS [Concomitant]
     Dosage: UNK
  2. GENOTROPIN [Suspect]
     Indication: GROWTH HORMONE DEFICIENCY
     Dosage: 1.8 MG, 1X/DAY
     Route: 058

REACTIONS (1)
  - HEADACHE [None]
